FAERS Safety Report 7722311-4 (Version None)
Quarter: 2011Q3

REPORT INFORMATION
  Report Type: 
  Country: None (occurrence: None)
  Receive Date: 20110831
  Receipt Date: 20110826
  Transmission Date: 20111222
  Serious: Yes (Hospitalization, Other)
  Sender: FDA-Public Use
  Company Number: US-ABBOTT-11P-163-0850010-00

PATIENT
  Sex: Female

DRUGS (9)
  1. GLYBURIDE [Concomitant]
     Indication: DIABETES MELLITUS
     Route: 048
  2. ATARAX [Concomitant]
     Indication: PRURITUS
  3. FEXOFENADINE [Concomitant]
     Indication: URTICARIA
     Route: 048
  4. ALLOPURINOL [Suspect]
     Indication: GOUT
     Dates: end: 20110601
  5. SYNTHROID [Suspect]
     Indication: THYROID DISORDER
     Route: 048
  6. SYNTHROID [Suspect]
     Indication: HYPOTHYROIDISM
     Route: 048
  7. FEXOFENADINE [Concomitant]
     Indication: PRURITUS
  8. SYNTHROID [Suspect]
     Indication: CHEMOTHERAPY
  9. ATARAX [Concomitant]
     Indication: URTICARIA

REACTIONS (8)
  - DEVICE RELATED INFECTION [None]
  - PRURITUS [None]
  - RENAL DISORDER [None]
  - LOSS OF CONSCIOUSNESS [None]
  - BACTERIAL SEPSIS [None]
  - AMNESIA [None]
  - URTICARIA [None]
  - ANAPHYLACTIC REACTION [None]
